FAERS Safety Report 15526009 (Version 1)
Quarter: 2018Q4

REPORT INFORMATION
  Report Type: Spontaneous
  Country: FR (occurrence: FR)
  Receive Date: 20181018
  Receipt Date: 20181018
  Transmission Date: 20190205
  Serious: Yes (Hospitalization)
  Sender: FDA-Public Use
  Company Number: FR-TEVA-2018-FR-965642

PATIENT
  Age: 79 Year
  Sex: Male

DRUGS (4)
  1. FUROSEMIDE. [Suspect]
     Active Substance: FUROSEMIDE
     Indication: CARDIAC FAILURE
     Dosage: 40 MILLIGRAM DAILY; IN THE MORNING
     Route: 048
     Dates: start: 20180817
  2. CEFAZOLINE [Suspect]
     Active Substance: CEFAZOLIN SODIUM
     Indication: ENDOCARDITIS
     Dosage: 9 GRAM DAILY;
     Dates: start: 20180819
  3. SPECIAFOLDINE [Suspect]
     Active Substance: FOLIC ACID
     Dosage: NOT RENSEIGNEE
     Route: 048
     Dates: start: 20180817
  4. PANTOPRAZOLE [Suspect]
     Active Substance: PANTOPRAZOLE
     Indication: PROPHYLAXIS AGAINST GASTROINTESTINAL ULCER
     Dosage: 20 MILLIGRAM DAILY; 1 TABLET PER DAY
     Route: 048
     Dates: start: 20180817

REACTIONS (2)
  - Condition aggravated [Not Recovered/Not Resolved]
  - Thrombocytopenia [Not Recovered/Not Resolved]

NARRATIVE: CASE EVENT DATE: 201808
